FAERS Safety Report 6120500-6 (Version None)
Quarter: 2009Q1

REPORT INFORMATION
  Report Type: 
  Country: None (occurrence: None)
  Receive Date: 20090317
  Receipt Date: 20090309
  Transmission Date: 20090719
  Serious: Yes (Hospitalization, Other)
  Sender: FDA-Public Use
  Company Number: CA-BRISTOL-MYERS SQUIBB COMPANY-14545362

PATIENT
  Sex: Male

DRUGS (2)
  1. WARFARIN SODIUM [Suspect]
  2. ASPIRIN [Suspect]

REACTIONS (2)
  - CORONARY ARTERY THROMBOSIS [None]
  - INTERNATIONAL NORMALISED RATIO DECREASED [None]
